FAERS Safety Report 9050365 (Version 1)
Quarter: 2013Q1

REPORT INFORMATION
  Report Type: Spontaneous
  Country: US (occurrence: US)
  Receive Date: 20130205
  Receipt Date: 20130205
  Transmission Date: 20140127
  Serious: No
  Sender: FDA-Public Use
  Company Number: US-VERTEX PHARMACEUTICALS INC.-2013-000846

PATIENT
  Age: 54 None
  Sex: Female

DRUGS (3)
  1. INCIVEK [Suspect]
     Indication: HEPATITIS C
     Dosage: 750 MG, UNK
     Route: 048
     Dates: start: 201211, end: 20121231
  2. PEGASYS [Suspect]
     Indication: HEPATITIS C
     Dosage: 180 ?G, UNK
     Route: 058
     Dates: start: 201211, end: 20121231
  3. COPEGUS [Suspect]
     Indication: HEPATITIS C
     Dosage: 5 TABS QD
     Route: 048
     Dates: start: 201211, end: 20121231

REACTIONS (1)
  - Drug ineffective [Not Recovered/Not Resolved]
